FAERS Safety Report 8658993 (Version 4)
Quarter: 2012Q4

REPORT INFORMATION
  Report Type: 
  Country: US (occurrence: US)
  Receive Date: 20120710
  Receipt Date: 20121011
  Transmission Date: 20130627
  Serious: Yes (Hospitalization)
  Sender: FDA-Public Use
  Company Number: US-GILEAD-2012-0057601

PATIENT
  Sex: Female

DRUGS (2)
  1. LETAIRIS [Suspect]
     Indication: PULMONARY HYPERTENSION
     Dosage: 5 mg, UNK
     Route: 048
     Dates: start: 20120406
  2. REMODULIN [Concomitant]

REACTIONS (6)
  - Pulmonary arterial hypertension [Unknown]
  - Device related infection [Unknown]
  - Hypotension [Unknown]
  - Dyspnoea [Unknown]
  - Headache [Unknown]
  - Vomiting [Unknown]
